FAERS Safety Report 7212919-7 (Version None)
Quarter: 2010Q4

REPORT INFORMATION
  Report Type: 
  Country: None (occurrence: None)
  Receive Date: 20101227
  Receipt Date: 20101216
  Transmission Date: 20110411
  Serious: Yes (Other)
  Sender: FDA-Public Use
  Company Number: 2010P1003414

PATIENT
  Age: 9 Year
  Sex: Female
  Weight: 36.2878 kg

DRUGS (3)
  1. MALATHION [Suspect]
     Indication: LICE INFESTATION
     Dosage: 1 APPLICATION; X1; TOP
     Route: 061
     Dates: start: 20101211, end: 20101211
  2. GUMMY-BEAR [Concomitant]
  3. VITAMIN TAB [Concomitant]

REACTIONS (1)
  - BURNS SECOND DEGREE [None]
